FAERS Safety Report 15964326 (Version 1)
Quarter: 2019Q1

REPORT INFORMATION
  Report Type: Spontaneous
  Country: FR (occurrence: FR)
  Receive Date: 20190215
  Receipt Date: 20190215
  Transmission Date: 20190417
  Serious: Yes (Other)
  Sender: FDA-Public Use
  Company Number: FR-AUROBINDO-AUR-APL-2019-007812

PATIENT

DRUGS (2)
  1. PARACETAMOL [Suspect]
     Active Substance: ACETAMINOPHEN
     Indication: PYREXIA
     Dosage: 1 DOSAGE FORM, COD?IN?
     Route: 048
     Dates: start: 20190114, end: 20190114
  2. CODEINE [Suspect]
     Active Substance: CODEINE
     Indication: PYREXIA
     Dosage: 1 DOSAGE FORM,COD?IN?
     Route: 048
     Dates: start: 20190114, end: 20190114

REACTIONS (2)
  - Dermatitis bullous [Not Recovered/Not Resolved]
  - Purpura [Not Recovered/Not Resolved]

NARRATIVE: CASE EVENT DATE: 20190114
